FAERS Safety Report 23439052 (Version 1)
Quarter: 2024Q1

REPORT INFORMATION
  Report Type: Spontaneous
  Country: SE (occurrence: SE)
  Receive Date: 20240124
  Receipt Date: 20240124
  Transmission Date: 20240410
  Serious: Yes (Life-Threatening, Hospitalization)
  Sender: FDA-Public Use
  Company Number: SE-GRANULES-SE-2024GRALIT00013

PATIENT
  Age: 32 Year
  Sex: Female
  Weight: 85 kg

DRUGS (14)
  1. LAMOTRIGINE [Suspect]
     Active Substance: LAMOTRIGINE
     Indication: Product used for unknown indication
     Dosage: 24 PLUS 6, 25 PLUS 5 AND 28 GESTATIONAL WEEKS
     Route: 065
  2. LAMOTRIGINE [Suspect]
     Active Substance: LAMOTRIGINE
     Dosage: 24 GESTATIONAL WEEKS
     Route: 065
  3. VENLAFAXINE HYDROCHLORIDE [Suspect]
     Active Substance: VENLAFAXINE HYDROCHLORIDE
     Indication: Product used for unknown indication
     Dosage: 24 PLUS 6, 25 PLUS 5 AND 28 GESTATIONAL WEEKS
     Route: 065
  4. VENLAFAXINE HYDROCHLORIDE [Suspect]
     Active Substance: VENLAFAXINE HYDROCHLORIDE
     Dosage: 24 GESTATIONAL WEEKS
     Route: 065
  5. ZOLPIDEM [Suspect]
     Active Substance: ZOLPIDEM TARTRATE
     Indication: Sleep disorder
     Dosage: 24 PLUS 6, 25 PLUS 5 AND 28 GESTATIONAL WEEKS
     Route: 065
  6. QUETIAPINE [Suspect]
     Active Substance: QUETIAPINE
     Indication: Sleep disorder
     Route: 065
  7. OXAZEPAM [Suspect]
     Active Substance: OXAZEPAM
     Indication: Anxiety
     Dosage: PRN- 24 PLUS 6, 25 PLUS 5 AND 28 GESTATIONAL WEEKS
     Route: 065
  8. PROMETHAZINE [Suspect]
     Active Substance: PROMETHAZINE HYDROCHLORIDE
     Indication: Anxiety
     Dosage: PRN-24 PLUS 6, 25 PLUS 5 AND 28 GESTATIONAL WEEKS
     Route: 065
  9. ONDANSETRON [Suspect]
     Active Substance: ONDANSETRON
     Indication: Nausea
     Dosage: PRN-24 PLUS 6, 25 PLUS 5 AND 28 GESTATIONAL WEEKS
     Route: 065
  10. OLANZAPINE [Suspect]
     Active Substance: OLANZAPINE
     Indication: Anxiety
     Route: 065
  11. OLANZAPINE [Suspect]
     Active Substance: OLANZAPINE
     Route: 065
  12. OLANZAPINE [Suspect]
     Active Substance: OLANZAPINE
     Dosage: FOR 2 WEEKS 25 PLUS 5 GESTATIONAL WEEKS
     Route: 065
  13. OLANZAPINE [Suspect]
     Active Substance: OLANZAPINE
     Route: 065
  14. MAGNESIUM SULFATE [Suspect]
     Active Substance: MAGNESIUM SULFATE\MAGNESIUM SULFATE HEPTAHYDRATE
     Indication: Seizure prophylaxis
     Route: 065

REACTIONS (4)
  - Pre-eclampsia [Recovered/Resolved]
  - Fluid retention [Recovered/Resolved]
  - Hypertension [Recovered/Resolved]
  - Exposure during pregnancy [Unknown]
